FAERS Safety Report 10660533 (Version 2)
Quarter: 2015Q1

REPORT INFORMATION
  Report Type: Spontaneous
  Country: US (occurrence: US)
  Receive Date: 20141217
  Receipt Date: 20150108
  Transmission Date: 20150720
  Serious: No
  Sender: FDA-Public Use
  Company Number: US-GLAXOSMITHKLINE-A1087322A

PATIENT

DRUGS (1)
  1. VOTRIENT [Suspect]
     Active Substance: PAZOPANIB HYDROCHLORIDE
     Indication: COLON CANCER
     Dosage: 800 MG, 1D
     Route: 065
     Dates: start: 20140804

REACTIONS (2)
  - Vomiting [Unknown]
  - Nausea [Unknown]
